FAERS Safety Report 18330350 (Version 1)
Quarter: 2020Q3

REPORT INFORMATION
  Report Type: Spontaneous
  Country: AU (occurrence: AU)
  Receive Date: 20200930
  Receipt Date: 20200930
  Transmission Date: 20201103
  Serious: Yes (Other)
  Sender: FDA-Public Use
  Company Number: AU-MYLANLABS-2020M1081470

PATIENT
  Sex: Female

DRUGS (1)
  1. ENDEP [Suspect]
     Active Substance: AMITRIPTYLINE HYDROCHLORIDE
     Indication: PRODUCT USED FOR UNKNOWN INDICATION
     Dosage: UNK

REACTIONS (5)
  - Seizure [Unknown]
  - Dyspnoea [Unknown]
  - Off label use [Unknown]
  - Vision blurred [Unknown]
  - Agitation [Unknown]
